FAERS Safety Report 6912072-0 (Version None)
Quarter: 2010Q3

REPORT INFORMATION
  Report Type: 
  Country: None (occurrence: None)
  Receive Date: 20100806
  Receipt Date: 20071116
  Transmission Date: 20110219
  Serious: No
  Sender: FDA-Public Use
  Company Number: US-PFIZER INC-2007089763

PATIENT
  Sex: Female

DRUGS (4)
  1. DETROL LA [Suspect]
     Indication: HYPERTONIC BLADDER
     Dates: start: 20070901
  2. THYROID TAB [Concomitant]
  3. VITAMIN TAB [Concomitant]
  4. LIPITOR [Concomitant]

REACTIONS (1)
  - DRUG INEFFECTIVE [None]
